FAERS Safety Report 23894263 (Version 1)
Quarter: 2024Q2

REPORT INFORMATION
  Report Type: Spontaneous
  Country: IN (occurrence: IN)
  Receive Date: 20240524
  Receipt Date: 20240524
  Transmission Date: 20240716
  Serious: Yes (Other)
  Sender: FDA-Public Use
  Company Number: IN-SUN PHARMACEUTICAL INDUSTRIES LTD-2024R1-445534

PATIENT
  Age: 60 Year
  Sex: Male

DRUGS (1)
  1. GLIMEPIRIDE\METFORMIN [Suspect]
     Active Substance: GLIMEPIRIDE\METFORMIN
     Indication: Hypoglycaemia
     Dosage: ONCE A DAY AT NIGHT
     Route: 048
     Dates: start: 2020

REACTIONS (1)
  - Hypoglycaemia [Unknown]
